FAERS Safety Report 25009100 (Version 3)
Quarter: 2025Q1

REPORT INFORMATION
  Report Type: Spontaneous
  Country: IN (occurrence: IN)
  Receive Date: 20250225
  Receipt Date: 20250304
  Transmission Date: 20250409
  Serious: Yes (Hospitalization, Other)
  Sender: PFIZER
  Company Number: IN-PFIZER INC-PV202400127353

PATIENT
  Age: 46 Year
  Sex: Male
  Weight: 79.9 kg

DRUGS (3)
  1. LORLATINIB [Suspect]
     Active Substance: LORLATINIB
     Indication: Lung adenocarcinoma
     Dosage: 100 MG, 1X/DAY
     Route: 048
     Dates: start: 20240912
  2. LORLATINIB [Suspect]
     Active Substance: LORLATINIB
     Indication: Non-small cell lung cancer
     Dosage: 75 MG, 1X/DAY
     Route: 048
  3. LEVETIRACETAM [Concomitant]
     Active Substance: LEVETIRACETAM
     Dosage: 500 MG, 2X/DAY
     Route: 048

REACTIONS (15)
  - Vomiting [Recovering/Resolving]
  - Disorientation [Recovering/Resolving]
  - Dysarthria [Recovering/Resolving]
  - Headache [Recovering/Resolving]
  - Brain oedema [Recovering/Resolving]
  - Hypertriglyceridaemia [Recovering/Resolving]
  - Weight increased [Unknown]
  - Blood pressure increased [Unknown]
  - Hyperlipidaemia [Unknown]
  - Hypercholesterolaemia [Recovering/Resolving]
  - Heart rate increased [Unknown]
  - Neoplasm progression [Unknown]
  - Weight decreased [Unknown]
  - Body mass index increased [Unknown]
  - Decreased appetite [Unknown]

NARRATIVE: CASE EVENT DATE: 20241024
